FAERS Safety Report 25545505 (Version 1)
Quarter: 2025Q3

REPORT INFORMATION
  Report Type: Report from Study
  Country: IN (occurrence: IN)
  Receive Date: 20250711
  Receipt Date: 20250711
  Transmission Date: 20251020
  Serious: Yes (Death, Hospitalization)
  Sender: DAIICHI
  Company Number: IN-AstraZeneca-CH-00904934A

PATIENT
  Sex: Male

DRUGS (1)
  1. ENHERTU [Suspect]
     Active Substance: FAM-TRASTUZUMAB DERUXTECAN-NXKI
     Indication: HER2 positive gastric cancer
     Dosage: 200 MG, ONCE EVERY 3 WK
     Route: 041

REACTIONS (4)
  - Malaise [Fatal]
  - Dyspnoea [Fatal]
  - Full blood count decreased [Fatal]
  - Haematological infection [Fatal]
